FAERS Safety Report 9313674 (Version 1)
Quarter: 2013Q2

REPORT INFORMATION
  Report Type: Spontaneous
  Country: US (occurrence: US)
  Receive Date: 20130529
  Receipt Date: 20130529
  Transmission Date: 20140414
  Serious: Yes (Other)
  Sender: FDA-Public Use
  Company Number: US-AMGEN-USASP2013030763

PATIENT
  Age: 34 Year
  Sex: Female
  Weight: 58.96 kg

DRUGS (7)
  1. ENBREL [Suspect]
     Indication: PRODUCT USED FOR UNKNOWN INDICATION
     Dosage: 50 MG, QWK
     Route: 058
     Dates: start: 20130422
  2. MEDROL                             /00049601/ [Concomitant]
     Dosage: 2 MG, UNK
  3. PRILOSEC                           /00661201/ [Concomitant]
     Dosage: 40 MG, UNK
  4. METHOTREXATE [Concomitant]
     Dosage: 2.5 MG, UNK
  5. WELLBUTRIN [Concomitant]
     Dosage: 75 MG, UNK
  6. FOLIC ACID [Concomitant]
     Dosage: UNK
  7. AMBIEN [Concomitant]
     Dosage: 5 MG, UNK

REACTIONS (5)
  - Tremor [Recovered/Resolved]
  - Headache [Unknown]
  - Dizziness [Unknown]
  - Ear pain [Recovered/Resolved]
  - Arthralgia [Unknown]
